FAERS Safety Report 5126552-4 (Version None)
Quarter: 2006Q4

REPORT INFORMATION
  Report Type: 
  Country: None (occurrence: None)
  Receive Date: 20061011
  Receipt Date: 20061011
  Transmission Date: 20070319
  Serious: Yes (Other)
  Sender: FDA-Public Use
  Company Number: None

PATIENT
  Sex: Male
  Weight: 81.6475 kg

DRUGS (1)
  1. ETANERCEPT  25 MG  AMGEN [Suspect]
     Indication: RHEUMATOID ARTHRITIS
     Dosage: 25 MG TWICE WEEKLY SQ
     Route: 058
     Dates: start: 20000505, end: 20051228

REACTIONS (2)
  - ATYPICAL MYCOBACTERIAL INFECTION [None]
  - SUBCUTANEOUS NODULE [None]
